FAERS Safety Report 10569859 (Version 1)
Quarter: 2014Q4

REPORT INFORMATION
  Report Type: Spontaneous
  Country: GB (occurrence: GB)
  Receive Date: 20141107
  Receipt Date: 20141107
  Transmission Date: 20150529
  Serious: Yes (Disabling)
  Sender: FDA-Public Use
  Company Number: GB-009507513-1411GBR001566

PATIENT
  Age: 49 Year
  Sex: Male

DRUGS (2)
  1. EZETROL [Suspect]
     Active Substance: EZETIMIBE
     Indication: BLOOD CHOLESTEROL INCREASED
     Dosage: UNK
     Route: 048
  2. EZETROL [Interacting]
     Active Substance: EZETIMIBE
     Dosage: DOSE HAS BEEN CHANGED
     Route: 048

REACTIONS (14)
  - Impaired work ability [Unknown]
  - Feeling abnormal [Unknown]
  - Rash [Unknown]
  - Drug interaction [Unknown]
  - Balance disorder [Unknown]
  - Psychiatric symptom [Unknown]
  - Frustration [Unknown]
  - Flushing [Unknown]
  - Fatigue [Unknown]
  - Movement disorder [Unknown]
  - Social problem [Unknown]
  - Diarrhoea [Unknown]
  - Quality of life decreased [Unknown]
  - Self esteem decreased [Unknown]
